FAERS Safety Report 4646235-4 (Version None)
Quarter: 2005Q2

REPORT INFORMATION
  Report Type: 
  Country: None (occurrence: None)
  Receive Date: 20050427
  Receipt Date: 20050208
  Transmission Date: 20051028
  Serious: Yes (Hospitalization)
  Sender: FDA-Public Use
  Company Number: FR-ROCHE-395014

PATIENT
  Age: 41 Year
  Sex: Female
  Weight: 61 kg

DRUGS (6)
  1. CELLCEPT [Suspect]
     Route: 065
  2. ROVALCYTE [Suspect]
     Route: 048
     Dates: start: 20040916, end: 20041203
  3. BACTRIM [Suspect]
     Route: 065
  4. MOPRAL [Concomitant]
  5. NEORAL [Concomitant]
  6. CORTANCYL [Concomitant]

REACTIONS (1)
  - AGRANULOCYTOSIS [None]
